FAERS Safety Report 24564217 (Version 2)
Quarter: 2024Q4

REPORT INFORMATION
  Report Type: Spontaneous
  Country: JP (occurrence: JP)
  Receive Date: 20241030
  Receipt Date: 20241103
  Transmission Date: 20250115
  Serious: Yes (Hospitalization)
  Sender: JOHNSON AND JOHNSON
  Company Number: JP-JNJFOC-20241080281

PATIENT
  Age: 85 Year
  Sex: Female

DRUGS (2)
  1. SIMPONI [Suspect]
     Active Substance: GOLIMUMAB
     Indication: Rheumatoid arthritis
     Route: 058
     Dates: end: 2024
  2. SIMPONI [Suspect]
     Active Substance: GOLIMUMAB
     Dosage: DOSE UNKNOWN
     Route: 058
     Dates: start: 20241027

REACTIONS (2)
  - Fall [Recovered/Resolved]
  - Fracture [Recovered/Resolved]

NARRATIVE: CASE EVENT DATE: 20240101
